FAERS Safety Report 20672776 (Version 1)
Quarter: 2022Q2

REPORT INFORMATION
  Report Type: Spontaneous
  Country: CN (occurrence: CN)
  Receive Date: 20220405
  Receipt Date: 20220405
  Transmission Date: 20220721
  Serious: Yes (Hospitalization)
  Sender: FDA-Public Use
  Company Number: CN-BAXTER-2022BAX007182

PATIENT
  Age: 75 Year
  Sex: Male
  Weight: 50 kg

DRUGS (7)
  1. CYCLOPHOSPHAMIDE [Suspect]
     Active Substance: CYCLOPHOSPHAMIDE
     Indication: Diffuse large B-cell lymphoma
     Dosage: ROUTE: INTRA-PUMP INJECTION, CYCLOPHOSPHAMIDE (1G) DILUTED WITH SOLVENT SODIUM CHLORIDE INJECTION (4
     Route: 050
     Dates: start: 20220113, end: 20220113
  2. RITUXIMAB [Suspect]
     Active Substance: RITUXIMAB
     Indication: Diffuse large B-cell lymphoma
     Dosage: RITUXIMAB (570 MG) DILUTED WITH SOLVENT SODIUM CHLORIDE INJECTION (500 ML)
     Route: 041
     Dates: start: 20220113, end: 20220113
  3. VINDESINE SULFATE [Suspect]
     Active Substance: VINDESINE SULFATE
     Indication: Diffuse large B-cell lymphoma
     Dosage: ROUTE: INTRA-PUMP INJECTION, VINDESINE SULFATE (4 MG) DILUTED WITH SOLVENT SODIUM CHLORIDE INJECTION
     Route: 050
     Dates: start: 20220113, end: 20220113
  4. PREDNISONE ACETATE [Suspect]
     Active Substance: PREDNISONE ACETATE
     Indication: Diffuse large B-cell lymphoma
     Route: 048
     Dates: start: 20220113, end: 20220118
  5. SODIUM CHLORIDE [Suspect]
     Active Substance: SODIUM CHLORIDE
     Indication: Medication dilution
     Dosage: ROUTE: INTRA-PUMP INJECTION, CYCLOPHOSPHAMIDE (1G) DILUTED WITH SOLVENT SODIUM CHLORIDE INJECTION (4
     Route: 050
     Dates: start: 20220113, end: 20220113
  6. SODIUM CHLORIDE [Suspect]
     Active Substance: SODIUM CHLORIDE
     Dosage: RITUXIMAB (570 MG) DILUTED WITH SOLVENT SODIUM CHLORIDE INJECTION (500 ML)
     Route: 041
     Dates: start: 20220113, end: 20220113
  7. SODIUM CHLORIDE [Suspect]
     Active Substance: SODIUM CHLORIDE
     Dosage: ROUTE: INTRA-PUMP INJECTION, VINDESINE SULFATE (4 MG) DILUTED WITH SOLVENT SODIUM CHLORIDE INJECTION
     Route: 050
     Dates: start: 20220113, end: 20220113

REACTIONS (2)
  - Complications of bone marrow transplant [Recovering/Resolving]
  - Myelosuppression [Recovering/Resolving]

NARRATIVE: CASE EVENT DATE: 20220122
